FAERS Safety Report 20394635 (Version 7)
Quarter: 2023Q2

REPORT INFORMATION
  Report Type: Report from Study
  Country: US (occurrence: US)
  Receive Date: 20220129
  Receipt Date: 20230617
  Transmission Date: 20230722
  Serious: Yes (Other)
  Sender: FDA-Public Use
  Company Number: US-NOVARTISPH-NVSC2022US017463

PATIENT
  Sex: Female

DRUGS (2)
  1. COSENTYX [Suspect]
     Active Substance: SECUKINUMAB
     Indication: Psoriasis
     Dosage: QMO
     Route: 058
     Dates: start: 202007
  2. COSENTYX [Suspect]
     Active Substance: SECUKINUMAB
     Dosage: UNK (LOWER DOSE)
     Route: 065

REACTIONS (6)
  - Cerebrovascular accident [Unknown]
  - Rash [Unknown]
  - Psoriasis [Unknown]
  - Erythema [Unknown]
  - Skin lesion [Unknown]
  - Pruritus [Unknown]
